FAERS Safety Report 4663128-7 (Version None)
Quarter: 2005Q2

REPORT INFORMATION
  Report Type: 
  Country: None (occurrence: None)
  Receive Date: 20050510
  Receipt Date: 20041220
  Transmission Date: 20051028
  Serious: Yes (Other)
  Sender: FDA-Public Use
  Company Number: PHEH2004US06486

PATIENT
  Age: 56 Year
  Sex: Female
  Weight: 81.6 kg

DRUGS (4)
  1. TEGRETOL [Suspect]
     Indication: CONVULSION
     Dosage: 200 MG IN AM +300 MG IN PM, ORAL
     Route: 048
     Dates: start: 19920101
  2. MOTRIN [Suspect]
     Indication: RHEUMATOID ARTHRITIS
     Dosage: 400 MG, QD, ORAL
     Route: 048
     Dates: start: 19690101, end: 20040101
  3. PREMARIN [Concomitant]
  4. MONOPRIL (FOSINOPIRL SODIUM) [Concomitant]

REACTIONS (2)
  - BLOOD ALKALINE PHOSPHATASE INCREASED [None]
  - GAMMA-GLUTAMYLTRANSFERASE INCREASED [None]
